FAERS Safety Report 5529158-8 (Version None)
Quarter: 2007Q4

REPORT INFORMATION
  Report Type: 
  Country: None (occurrence: None)
  Receive Date: 20071129
  Receipt Date: 20070307
  Transmission Date: 20080405
  Serious: No
  Sender: FDA-Public Use
  Company Number: A0642199A

PATIENT
  Age: 44 Year
  Sex: Male

DRUGS (3)
  1. WELLBUTRIN SR [Suspect]
     Indication: DEPRESSION
     Dosage: 450MG PER DAY
     Route: 048
     Dates: start: 20050101
  2. PHENYTOIN [Concomitant]
  3. PHENOBARBITAL TAB [Concomitant]

REACTIONS (2)
  - OVERDOSE [None]
  - WHITE BLOOD CELL COUNT DECREASED [None]
